FAERS Safety Report 8425390 (Version 3)
Quarter: 2012Q4

REPORT INFORMATION
  Report Type: 
  Country: US (occurrence: US)
  Receive Date: 20120224
  Receipt Date: 20121004
  Transmission Date: 20130627
  Serious: Yes (Hospitalization, Other)
  Sender: FDA-Public Use
  Company Number: US-BAYER-2012-017115

PATIENT
  Age: 41 Year
  Sex: Female
  Weight: 99 kg

DRUGS (11)
  1. OCELLA [Suspect]
     Indication: CONTRACEPTION
     Dosage: UNK
     Dates: start: 200812, end: 201006
  2. GIANVI [Suspect]
     Indication: CONTRACEPTION
     Dosage: UNK
     Dates: start: 201006, end: 20100803
  3. LISINOPRIL [Concomitant]
     Indication: HYPERTENSION
     Dosage: 30 mg, QD
     Route: 048
     Dates: start: 200801
  4. BUSPAR [Concomitant]
     Dosage: 10 mg, daily
     Route: 048
  5. ZOLOFT [Concomitant]
     Dosage: 100 mg, daily
     Route: 048
  6. BABY ASPIRIN [Concomitant]
     Indication: CEREBROVASCULAR ACCIDENT PROPHYLAXIS
     Dosage: Daily
     Dates: start: 20101124
  7. SPACE CHAMBER [Concomitant]
  8. VENTOLIN [Concomitant]
  9. SERTRALINE [Concomitant]
     Dosage: 100 mg, 1/2 tab, QD
     Dates: start: 2009
  10. BUSPIRONE [Concomitant]
     Dosage: 10 mg,1/2 tab, BID
     Dates: start: 2009
  11. CELEXA [Concomitant]
     Dosage: 20 mg, QD
     Dates: start: 200907

REACTIONS (2)
  - Transient ischaemic attack [None]
  - Cerebrovascular accident [None]
